FAERS Safety Report 17248973 (Version 1)
Quarter: 2020Q1

REPORT INFORMATION
  Report Type: Spontaneous
  Country: US (occurrence: US)
  Receive Date: 20200108
  Receipt Date: 20200108
  Transmission Date: 20200409
  Serious: No
  Sender: FDA-Public Use
  Company Number: US-COLLEGIUM PHARMACEUTICAL, INC.-US-2019COL000374

PATIENT
  Sex: Female
  Weight: 85.26 kg

DRUGS (5)
  1. CLONIDINE. [Concomitant]
     Active Substance: CLONIDINE
     Indication: PRODUCT USED FOR UNKNOWN INDICATION
     Dosage: UNK
  2. NUCYNTA [Suspect]
     Active Substance: TAPENTADOL HYDROCHLORIDE
     Dosage: 37.5 MG, UNK
     Route: 048
  3. NUCYNTA [Suspect]
     Active Substance: TAPENTADOL HYDROCHLORIDE
     Indication: PAIN MANAGEMENT
     Dosage: 75 MG, BID
     Route: 048
     Dates: start: 201902
  4. NUCYNTA [Suspect]
     Active Substance: TAPENTADOL HYDROCHLORIDE
     Dosage: 75 MG, QD (IN THE MORNING)
     Route: 048
  5. NEURONTIN [Concomitant]
     Active Substance: GABAPENTIN
     Indication: PRODUCT USED FOR UNKNOWN INDICATION
     Dosage: UNK

REACTIONS (3)
  - Feeling abnormal [Recovered/Resolved]
  - Drug ineffective [Unknown]
  - Wrong technique in product usage process [Unknown]
